FAERS Safety Report 22623691 (Version 2)
Quarter: 2023Q2

REPORT INFORMATION
  Report Type: Spontaneous
  Country: CA (occurrence: CA)
  Receive Date: 20230621
  Receipt Date: 20230627
  Transmission Date: 20230721
  Serious: Yes (Other)
  Sender: FDA-Public Use
  Company Number: CA-PERRIGO-23CA007065

PATIENT
  Sex: Female

DRUGS (1)
  1. CLEARLAX [Suspect]
     Active Substance: POLYETHYLENE GLYCOL 3350
     Indication: Product used for unknown indication
     Dosage: UNKNOWN, TWO TO THREE TIMES WITHIN 24 HOURS
     Route: 048
     Dates: start: 202306, end: 202306

REACTIONS (8)
  - Oedema peripheral [Recovering/Resolving]
  - Vascular rupture [Recovering/Resolving]
  - Erythema [Not Recovered/Not Resolved]
  - Pain in extremity [Recovering/Resolving]
  - Purpura [Not Recovered/Not Resolved]
  - Limb discomfort [Recovering/Resolving]
  - Exposure to unspecified agent [Unknown]
  - Inappropriate schedule of product administration [Recovered/Resolved]

NARRATIVE: CASE EVENT DATE: 20230601
